FAERS Safety Report 10642543 (Version 1)
Quarter: 2014Q4

REPORT INFORMATION
  Report Type: Spontaneous
  Country: US (occurrence: None)
  Receive Date: 20141208
  Receipt Date: 20141208
  Transmission Date: 20150529
  Serious: Yes (Other)
  Sender: FDA-Public Use
  Company Number: None

PATIENT
  Age: 45 Year
  Sex: Female
  Weight: 97.98 kg

DRUGS (1)
  1. CIPROFLOXACIN. [Suspect]
     Active Substance: CIPROFLOXACIN
     Indication: URINARY TRACT INFECTION
     Dosage: 1 PILL, TAKEN BY MOUTH
     Route: 048
     Dates: start: 20110713, end: 20110714

REACTIONS (5)
  - Arthralgia [None]
  - Pain in extremity [None]
  - Pain [None]
  - Muscle tightness [None]
  - Fatigue [None]

NARRATIVE: CASE EVENT DATE: 20110713
